FAERS Safety Report 22298228 (Version 1)
Quarter: 2023Q2

REPORT INFORMATION
  Report Type: Spontaneous
  Country: US (occurrence: US)
  Receive Date: 20230509
  Receipt Date: 20230509
  Transmission Date: 20230722
  Serious: Yes (Hospitalization, Other)
  Sender: FDA-Public Use
  Company Number: US-CIPLA LTD.-2023US02323

PATIENT

DRUGS (1)
  1. VIGABATRIN [Suspect]
     Active Substance: VIGABATRIN
     Indication: Lennox-Gastaut syndrome
     Dosage: 3000 MG DAILY
     Route: 048

REACTIONS (2)
  - Respiratory tract infection [Unknown]
  - Respiratory failure [Unknown]
